FAERS Safety Report 5807026-1 (Version None)
Quarter: 2008Q3

REPORT INFORMATION
  Report Type: 
  Country: None (occurrence: None)
  Receive Date: 20080711
  Receipt Date: 20080707
  Transmission Date: 20090109
  Serious: Yes (Other)
  Sender: FDA-Public Use
  Company Number: US-BRISTOL-MYERS SQUIBB COMPANY-14239313

PATIENT
  Age: 46 Year
  Sex: Female

DRUGS (5)
  1. ORENCIA [Suspect]
     Indication: RHEUMATOID ARTHRITIS
     Dosage: FIRST INFUSION:19FEB08 PREVIOUSLY TAKEN SEP06-JUL07 RECENT INFUSION:10JUN08 DURATION:APPROX.30MIN
     Route: 042
     Dates: start: 20080219
  2. MINOCYCLINE HCL [Concomitant]
  3. NORTRIPTYLINE HCL [Concomitant]
  4. AZATHIOPRINE [Concomitant]
  5. RITUXIMAB [Concomitant]

REACTIONS (2)
  - RASH GENERALISED [None]
  - SYSTEMIC LUPUS ERYTHEMATOSUS [None]
